FAERS Safety Report 7278977-9 (Version None)
Quarter: 2011Q1

REPORT INFORMATION
  Report Type: 
  Country: None (occurrence: None)
  Receive Date: 20110207
  Receipt Date: 20110126
  Transmission Date: 20110831
  Serious: Yes (Hospitalization)
  Sender: FDA-Public Use
  Company Number: PHHY2011ES08152

PATIENT
  Age: 70 Year
  Sex: Male

DRUGS (5)
  1. METFORMIN HCL [Concomitant]
  2. PREGABALIN [Concomitant]
  3. OXIBUTININE [Concomitant]
  4. MIRTAZAPINE [Concomitant]
  5. ZOMETA [Suspect]
     Indication: PROSTATE CANCER
     Dosage: 4 MG,
     Dates: start: 20090324, end: 20101015

REACTIONS (1)
  - OSTEONECROSIS OF JAW [None]
